FAERS Safety Report 23107356 (Version 1)
Quarter: 2023Q4

REPORT INFORMATION
  Report Type: Spontaneous
  Country: US (occurrence: US)
  Receive Date: 20231026
  Receipt Date: 20231026
  Transmission Date: 20240109
  Serious: Yes (Life-Threatening, Hospitalization, Other)
  Sender: FDA-Public Use
  Company Number: US-MLMSERVICE-20231005-4588583-1

PATIENT

DRUGS (1)
  1. AMIODARONE [Suspect]
     Active Substance: AMIODARONE
     Indication: Product used for unknown indication
     Dosage: FOR 1 YEAR
     Route: 065

REACTIONS (3)
  - Lung opacity [Recovering/Resolving]
  - Hypoxia [Recovering/Resolving]
  - Pulmonary toxicity [Recovering/Resolving]
